FAERS Safety Report 10435142 (Version 1)
Quarter: 2014Q1

REPORT INFORMATION
  Report Type: Spontaneous
  Country: JP (occurrence: None)
  Receive Date: 20130912
  Receipt Date: 20130912
  Transmission Date: 20141002
  Serious: Yes (Death)
  Sender: FDA-Public Use
  Company Number: JP-LHC-2013041

PATIENT
  Age: 73 Year
  Sex: Male

DRUGS (1)
  1. OXYGEN (OXYGEN) (GAS FOR INHALATION) (VERUM) [Suspect]
     Indication: CHRONIC RESPIRATORY FAILURE
     Dosage: PER MIN.
     Route: 055

REACTIONS (3)
  - Cardio-respiratory arrest [None]
  - Completed suicide [None]
  - Air embolism [None]
